FAERS Safety Report 7047449-9 (Version None)
Quarter: 2010Q4

REPORT INFORMATION
  Report Type: 
  Country: None (occurrence: None)
  Receive Date: 20101015
  Receipt Date: 20101004
  Transmission Date: 20110411
  Serious: Yes (Other)
  Sender: FDA-Public Use
  Company Number: US-ACTELION-A-NJ2009-27945

PATIENT
  Sex: Female

DRUGS (4)
  1. BOSENTAN TABLET UNKNOWN US MG [Suspect]
     Indication: PULMONARY ARTERIAL HYPERTENSION
     Dosage: 125 MG, BID
     Route: 048
     Dates: start: 20060308, end: 20090101
  2. BOSENTAN TABLET UNKNOWN US MG [Suspect]
     Route: 048
     Dates: start: 20090623
  3. REMODULIN [Concomitant]
  4. SILDENAFIL CITRATE [Concomitant]
     Indication: PULMONARY ARTERIAL HYPERTENSION

REACTIONS (5)
  - CAESAREAN SECTION [None]
  - DISEASE PROGRESSION [None]
  - LIVE BIRTH [None]
  - PREGNANCY [None]
  - PULMONARY ARTERIAL HYPERTENSION [None]
